FAERS Safety Report 6092393-7 (Version None)
Quarter: 2009Q1

REPORT INFORMATION
  Report Type: 
  Country: None (occurrence: None)
  Receive Date: 20090225
  Receipt Date: 20090212
  Transmission Date: 20090719
  Serious: Yes (Other)
  Sender: FDA-Public Use
  Company Number: PHEH2009US01671

PATIENT
  Sex: Female

DRUGS (2)
  1. DIOVAN [Suspect]
  2. NORVASC [Concomitant]

REACTIONS (3)
  - EYE DISORDER [None]
  - PHOTOPSIA [None]
  - VISUAL IMPAIRMENT [None]
